FAERS Safety Report 6717005-8 (Version None)
Quarter: 2010Q2

REPORT INFORMATION
  Report Type: 
  Country: None (occurrence: None)
  Receive Date: 20100510
  Receipt Date: 20100427
  Transmission Date: 20101027
  Serious: Yes (Hospitalization, Other)
  Sender: FDA-Public Use
  Company Number: US-JNJFOC-20100108464

PATIENT
  Sex: Female
  Weight: 74.39 kg

DRUGS (16)
  1. REMICADE [Suspect]
     Indication: RHEUMATOID ARTHRITIS
     Route: 042
  2. POTASSIUM [Concomitant]
     Route: 048
  3. METHOTREXATE [Concomitant]
     Indication: RHEUMATOID ARTHRITIS
     Route: 048
  4. AMILORIDE HCL AND HYDROCHLOROTHIAZIDE [Concomitant]
     Route: 048
  5. FLUOXETINE [Concomitant]
     Route: 048
  6. FOLIC ACID [Concomitant]
     Route: 048
  7. LEVETIRACETAM [Concomitant]
     Route: 048
  8. MORPHINE [Concomitant]
     Indication: BACK PAIN
  9. MS CONTIN [Concomitant]
     Route: 048
  10. MULTIPLE VITAMINS [Concomitant]
     Route: 048
  11. PREVACID [Concomitant]
     Route: 048
  12. LEVAQUIN [Concomitant]
     Route: 048
  13. NYSTATIN [Concomitant]
     Route: 048
  14. FLUCONAZOLE [Concomitant]
     Route: 048
  15. MORPHINE SULFATE [Concomitant]
     Route: 048
  16. IBUPROFEN [Concomitant]
     Route: 048

REACTIONS (5)
  - FOOT DEFORMITY [None]
  - MALAISE [None]
  - RHEUMATOID ARTHRITIS [None]
  - RHEUMATOID NODULE [None]
  - SCIATICA [None]
